FAERS Safety Report 4452775-3 (Version None)
Quarter: 2004Q3

REPORT INFORMATION
  Report Type: 
  Country: None (occurrence: None)
  Receive Date: 20040916
  Receipt Date: 20040906
  Transmission Date: 20050211
  Serious: Yes (Other)
  Sender: FDA-Public Use
  Company Number: 2003018179

PATIENT
  Age: 73 Year
  Sex: Male
  Weight: 70 kg

DRUGS (7)
  1. PRAZOSIN HCL [Suspect]
     Indication: HYPERTENSION
     Dosage: 4 MG (2 IN 1 D), ORAL
     Route: 048
     Dates: start: 19880101
  2. PRAZOSIN HCL [Suspect]
     Indication: PROSTATIC DISORDER
     Dosage: 4 MG (2 IN 1 D), ORAL
     Route: 048
     Dates: start: 19880101
  3. ATENOLOL [Concomitant]
  4. BENDROFLUMETHIAZIDE (BENDROFLUMETHIAZIDE) [Concomitant]
  5. PERINDOPRIL (PERINDOPRIL) [Concomitant]
  6. PRAVASTATIN [Concomitant]
  7. ALL OTHER THERAPEUTIC PRODUCTS (ALL OTHER THERAPEUTIC PRODUCTS) [Concomitant]

REACTIONS (1)
  - SICK SINUS SYNDROME [None]
